FAERS Safety Report 13500382 (Version 1)
Quarter: 2017Q2

REPORT INFORMATION
  Report Type: Spontaneous
  Country: US (occurrence: US)
  Receive Date: 20170501
  Receipt Date: 20170501
  Transmission Date: 20170830
  Serious: No
  Sender: FDA-Public Use
  Company Number: US-009507513-1704USA011133

PATIENT
  Sex: Male

DRUGS (1)
  1. NASONEX [Suspect]
     Active Substance: MOMETASONE FUROATE
     Dosage: 2 SPRAY, IN EACH NOSTRIL,  (ONCE DAILY)
     Route: 045

REACTIONS (3)
  - Product use issue [Unknown]
  - No adverse event [Unknown]
  - Product quality issue [Unknown]
